FAERS Safety Report 4486669-4 (Version None)
Quarter: 2004Q4

REPORT INFORMATION
  Report Type: 
  Country: None (occurrence: None)
  Receive Date: 20041021
  Receipt Date: 20041007
  Transmission Date: 20050328
  Serious: Yes (Hospitalization, Other)
  Sender: FDA-Public Use
  Company Number: 2004232056SE

PATIENT
  Age: 36 Year
  Sex: Female

DRUGS (1)
  1. DEPO-PROVERA [Suspect]
     Indication: CONTRACEPTION
     Dosage: LAST INJECTION , INTRAMUSCULAR
     Route: 030
     Dates: start: 20040501, end: 20040501

REACTIONS (3)
  - CONDITION AGGRAVATED [None]
  - ORAL MUCOSAL BLISTERING [None]
  - VAGINAL MUCOSAL BLISTERING [None]
